FAERS Safety Report 13748493 (Version 1)
Quarter: 2017Q3

REPORT INFORMATION
  Report Type: Spontaneous
  Country: US (occurrence: US)
  Receive Date: 20170713
  Receipt Date: 20170713
  Transmission Date: 20171127
  Serious: No
  Sender: FDA-Public Use
  Company Number: US-009507513-1706USA009100

PATIENT
  Sex: Female

DRUGS (1)
  1. NEXPLANON [Suspect]
     Active Substance: ETONOGESTREL
     Dosage: LEFT ARM
     Route: 059
     Dates: start: 2014, end: 20170521

REACTIONS (4)
  - Complication associated with device [Recovered/Resolved]
  - Difficulty removing drug implant [Recovered/Resolved]
  - Incorrect drug administration duration [Unknown]
  - Surgery [Unknown]

NARRATIVE: CASE EVENT DATE: 2017
